FAERS Safety Report 24663501 (Version 1)
Quarter: 2024Q4

REPORT INFORMATION
  Report Type: Spontaneous
  Country: DE (occurrence: DE)
  Receive Date: 20241126
  Receipt Date: 20241126
  Transmission Date: 20250114
  Serious: Yes (Other)
  Sender: GLAXOSMITHKLINE
  Company Number: DE-GSK-DE2024EME144761

PATIENT

DRUGS (1)
  1. JEMPERLI [Suspect]
     Active Substance: DOSTARLIMAB\DOSTARLIMAB-GXLY
     Indication: Endometrial cancer recurrent
     Dosage: UNK,500 MG, 2 VIALS
     Dates: end: 20230420

REACTIONS (1)
  - Malignant neoplasm progression [Unknown]
